FAERS Safety Report 8729870 (Version 2)
Quarter: 2012Q4

REPORT INFORMATION
  Report Type: 
  Country: CA (occurrence: CA)
  Receive Date: 20120817
  Receipt Date: 20121002
  Transmission Date: 20130627
  Serious: Yes (Death, Disabling)
  Sender: FDA-Public Use
  Company Number: CA-GLAXOSMITHKLINE-A0916612A

PATIENT
  Age: 54 Year
  Sex: Female

DRUGS (2)
  1. TYKERB [Suspect]
     Indication: BREAST CANCER METASTATIC
     Dosage: 1250MG Per day
     Route: 048
     Dates: start: 20110126, end: 201110
  2. XELODA [Concomitant]

REACTIONS (7)
  - Paraesthesia [Unknown]
  - Hepatic enzyme increased [Not Recovered/Not Resolved]
  - Inflammation [Unknown]
  - Pain in extremity [Unknown]
  - Asthenia [Unknown]
  - Liver function test abnormal [Not Recovered/Not Resolved]
  - Breast cancer metastatic [Fatal]
